FAERS Safety Report 8060663 (Version 2)
Quarter: 2012Q4

REPORT INFORMATION
  Report Type: 
  Country: IT (occurrence: IT)
  Receive Date: 20110729
  Receipt Date: 20121001
  Transmission Date: 20130627
  Serious: Yes (Other)
  Sender: FDA-Public Use
  Company Number: PHHY2011IT64488

PATIENT
  Age: 86 Year
  Sex: Male

DRUGS (9)
  1. TASIGNA [Suspect]
     Indication: CHRONIC MYELOID LEUKAEMIA
     Dosage: 400 mg, daily
     Route: 048
     Dates: start: 20090721
  2. TASIGNA [Suspect]
     Dosage: 800 mg, daily
     Route: 048
     Dates: end: 20090726
  3. TASIGNA [Suspect]
     Dosage: 400 mg, daily
  4. TASIGNA [Suspect]
     Dosage: 800 mg, daily
     Route: 048
  5. COUMADINE [Concomitant]
     Dosage: 1 DF, UNK
     Route: 048
  6. ESOPRAL [Concomitant]
     Dosage: 40 mg, daily
     Route: 048
  7. ATENOLOL [Concomitant]
     Dosage: 25 mg, daily
  8. APROVEL [Concomitant]
     Dosage: 300 mg, daily
  9. ZYLORIC [Concomitant]
     Dosage: 300 mg, daily
     Dates: start: 20081201

REACTIONS (6)
  - Hepatotoxicity [Recovered/Resolved]
  - Blood bilirubin increased [Unknown]
  - Aspartate aminotransferase increased [Unknown]
  - Alanine aminotransferase increased [Unknown]
  - Abdominal pain [Recovered/Resolved]
  - Vomiting [Recovered/Resolved]
